FAERS Safety Report 6711547-7 (Version None)
Quarter: 2010Q2

REPORT INFORMATION
  Report Type: 
  Country: None (occurrence: None)
  Receive Date: 20100505
  Receipt Date: 20100422
  Transmission Date: 20101027
  Serious: Yes (Hospitalization)
  Sender: FDA-Public Use
  Company Number: PHHY2010SE25849

PATIENT
  Sex: Female

DRUGS (3)
  1. LEPONEX [Suspect]
     Dosage: UNK
  2. IMOVANE [Concomitant]
     Dosage: WHEN NECESSARY
  3. EGAZIL [Concomitant]

REACTIONS (1)
  - RENAL FAILURE [None]
